FAERS Safety Report 5497211-3 (Version None)
Quarter: 2007Q4

REPORT INFORMATION
  Report Type: 
  Country: None (occurrence: None)
  Receive Date: 20071025
  Receipt Date: 20061127
  Transmission Date: 20080405
  Serious: No
  Sender: FDA-Public Use
  Company Number: A0619755A

PATIENT
  Sex: Female

DRUGS (10)
  1. ADVAIR DISKUS 100/50 [Suspect]
     Indication: ASTHMA
     Dosage: 1PUFF TWICE PER DAY
     Route: 055
     Dates: start: 20040101
  2. PREDNISONE [Concomitant]
  3. THEOPHYLLINE [Concomitant]
  4. FOLIC ACID [Concomitant]
  5. ENALAPRIL MALEATE [Concomitant]
  6. LEFLUNOMIDE [Concomitant]
  7. OMEPRAZOLE [Concomitant]
  8. VIVELLE [Concomitant]
  9. FOSAMAX [Concomitant]
  10. CALCIUM [Concomitant]

REACTIONS (2)
  - PHARMACEUTICAL PRODUCT COMPLAINT [None]
  - RESPIRATORY DISORDER [None]
